FAERS Safety Report 5162921-4 (Version None)
Quarter: 2006Q4

REPORT INFORMATION
  Report Type: 
  Country: None (occurrence: None)
  Receive Date: 20061201
  Receipt Date: 20061121
  Transmission Date: 20070319
  Serious: Yes (Disabling, Other)
  Sender: FDA-Public Use
  Company Number: JP-SANOFI-SYNTHELABO-A01200610187

PATIENT
  Age: 87 Year
  Sex: Female

DRUGS (2)
  1. MYSLEE [Suspect]
     Indication: INSOMNIA
     Route: 048
     Dates: start: 20060810, end: 20060810
  2. MYSLEE [Suspect]
     Route: 048
     Dates: start: 20060816, end: 20060816

REACTIONS (1)
  - RESPIRATORY DISORDER [None]
